FAERS Safety Report 14998191 (Version 1)
Quarter: 2018Q2

REPORT INFORMATION
  Report Type: Spontaneous
  Country: US (occurrence: US)
  Receive Date: 20180520
  Receipt Date: 20180520
  Transmission Date: 20180711
  Serious: No
  Sender: FDA-Public Use
  Company Number: None

PATIENT
  Age: 41 Year
  Sex: Female

DRUGS (3)
  1. MYFORTIC [Suspect]
     Active Substance: MYCOPHENOLATE SODIUM
  2. SIROLIMUS TAB 1 MG [Suspect]
     Active Substance: SIROLIMUS
  3. TACROLIMUS CAP 0.5 MG [Suspect]
     Active Substance: TACROLIMUS

REACTIONS (1)
  - Off label use [None]

NARRATIVE: CASE EVENT DATE: 20180520
